FAERS Safety Report 13620220 (Version 1)
Quarter: 2017Q2

REPORT INFORMATION
  Report Type: Spontaneous
  Country: US (occurrence: US)
  Receive Date: 20170607
  Receipt Date: 20170607
  Transmission Date: 20170830
  Serious: Yes (Other)
  Sender: FDA-Public Use
  Company Number: US-GLAXOSMITHKLINE-US2017086376

PATIENT
  Sex: Female

DRUGS (5)
  1. ADVAIR DISKUS [Suspect]
     Active Substance: FLUTICASONE PROPIONATE\SALMETEROL XINAFOATE
     Dosage: 250/50
  2. ADVAIR DISKUS [Suspect]
     Active Substance: FLUTICASONE PROPIONATE\SALMETEROL XINAFOATE
     Indication: ASTHMA
     Dosage: 1 PUFF(S), 1D
     Route: 055
     Dates: start: 2014
  3. ZOLOFT [Concomitant]
     Active Substance: SERTRALINE HYDROCHLORIDE
  4. TRAMADOL. [Concomitant]
     Active Substance: TRAMADOL
  5. XANAX [Concomitant]
     Active Substance: ALPRAZOLAM

REACTIONS (12)
  - Malaise [Not Recovered/Not Resolved]
  - Hip fracture [Not Recovered/Not Resolved]
  - Bone disorder [Not Recovered/Not Resolved]
  - Drug dose omission [Unknown]
  - Underdose [Unknown]
  - Cough [Recovering/Resolving]
  - Chest discomfort [Recovered/Resolved]
  - Drug ineffective [Unknown]
  - Expired product administered [Unknown]
  - Tremor [Not Recovered/Not Resolved]
  - Abdominal discomfort [Recovered/Resolved]
  - Headache [Not Recovered/Not Resolved]

NARRATIVE: CASE EVENT DATE: 2014
